FAERS Safety Report 9769292 (Version 1)
Quarter: 2013Q4

REPORT INFORMATION
  Report Type: Spontaneous
  Country: US (occurrence: None)
  Receive Date: 20131206
  Receipt Date: 20131206
  Transmission Date: 20140711
  Serious: Yes (Other)
  Sender: FDA-Public Use
  Company Number: ZZZ-001-13-US INITIAL

PATIENT
  Age: 58 Year
  Sex: Female

DRUGS (14)
  1. GAMMAGARD S/D [Suspect]
     Indication: IMMUNODEFICIENCY COMMON VARIABLE
     Dosage: 700 ML (1 X 1 / D), INTRAVENOUS
     Route: 042
     Dates: start: 20131113, end: 20131113
  2. DOXYCYCLINE [Concomitant]
  3. METHYLPREDNISOLONE [Concomitant]
  4. LORAZEPAM [Concomitant]
  5. DIPHENHYDRAMINE [Concomitant]
  6. VITAMIN D [Concomitant]
  7. ACETAMINOPHEN [Concomitant]
  8. OXYCODONE [Concomitant]
  9. CITALOPRAM [Concomitant]
  10. TRAZODONE [Concomitant]
  11. ALBUTEROL [Concomitant]
  12. FLUTICASONE [Concomitant]
  13. SALMETEROL [Concomitant]
  14. ACETAMINOPHEN [Concomitant]

REACTIONS (4)
  - Gait disturbance [None]
  - Balance disorder [None]
  - Fatigue [None]
  - Aphasia [None]
